FAERS Safety Report 13623863 (Version 1)
Quarter: 2017Q2

REPORT INFORMATION
  Report Type: Spontaneous
  Country: US (occurrence: US)
  Receive Date: 20170607
  Receipt Date: 20170607
  Transmission Date: 20170830
  Serious: No
  Sender: FDA-Public Use
  Company Number: US-GLAXOSMITHKLINE-US2017086342

PATIENT
  Sex: Female

DRUGS (4)
  1. ADVAIR DISKUS [Suspect]
     Active Substance: FLUTICASONE PROPIONATE\SALMETEROL XINAFOATE
     Indication: INFLUENZA
     Dosage: 1 PUFF(S), BID
     Route: 055
     Dates: start: 20170404
  2. PHENOBARBITAL. [Concomitant]
     Active Substance: PHENOBARBITAL
  3. LIPITOR [Concomitant]
     Active Substance: ATORVASTATIN CALCIUM
  4. ADVAIR DISKUS [Suspect]
     Active Substance: FLUTICASONE PROPIONATE\SALMETEROL XINAFOATE
     Dosage: 1 PUFF(S), QD
     Route: 055

REACTIONS (7)
  - Fatigue [Recovered/Resolved]
  - Off label use [Unknown]
  - Heart rate increased [Recovered/Resolved]
  - Intentional underdose [Recovered/Resolved]
  - Hypersomnia [Recovered/Resolved]
  - Vision blurred [Recovered/Resolved]
  - Palpitations [Recovered/Resolved]
